FAERS Safety Report 9660370 (Version 1)
Quarter: 2013Q4

REPORT INFORMATION
  Report Type: Spontaneous
  Country: US (occurrence: US)
  Receive Date: 20131031
  Receipt Date: 20131031
  Transmission Date: 20140711
  Serious: Yes (Other)
  Sender: FDA-Public Use
  Company Number: US-NAPPMUNDI-USA-2011-0075016

PATIENT
  Age: 32 Year
  Sex: Male

DRUGS (9)
  1. OXYCONTIN TABLETS [Suspect]
     Indication: SPINAL FRACTURE
  2. OXYCONTIN TABLETS [Suspect]
     Indication: INTERVERTEBRAL DISC PROTRUSION
  3. OXYCONTIN TABLETS [Suspect]
     Indication: BACK PAIN
  4. PERCOCET /00867901/ [Suspect]
     Indication: SPINAL FRACTURE
  5. PERCOCET /00867901/ [Suspect]
     Indication: INTERVERTEBRAL DISC PROTRUSION
  6. PERCOCET /00867901/ [Suspect]
     Indication: BACK PAIN
  7. FENTANYL [Suspect]
     Indication: SPINAL FRACTURE
  8. FENTANYL [Suspect]
     Indication: INTERVERTEBRAL DISC PROTRUSION
  9. FENTANYL [Suspect]
     Indication: BACK PAIN

REACTIONS (1)
  - Drug dependence [Recovering/Resolving]
